FAERS Safety Report 10261300 (Version 1)
Quarter: 2014Q2

REPORT INFORMATION
  Report Type: Spontaneous
  Country: BR (occurrence: None)
  Receive Date: 20140623
  Receipt Date: 20140623
  Transmission Date: 20141212
  Serious: Yes (Other)
  Sender: FDA-Public Use
  Company Number: KAD201406-000618

PATIENT
  Age: 67 Year
  Sex: Female

DRUGS (6)
  1. RIBAVIRIN [Suspect]
     Indication: CHRONIC HEPATITIS C
     Dosage: STRENGTH: 250 MG, 1000 MG/DAY
  2. INCIVIO (TELAPREVIR) [Suspect]
     Indication: CHRONIC HEPATITIS C
     Dosage: STRENTH: 375 MG, 2250 MG/DAY
  3. PEGASYS [Suspect]
     Indication: CHRONIC HEPATITIS C
  4. ATENOLOL (ATENOLOL) (ATENOLOL) [Concomitant]
  5. CHLORTHALIDONE (CHLORTHALIDONE) (CHLORTHALIDONE) [Concomitant]
  6. METFORMIN XR (METFORMIN) (METFORMIN) [Concomitant]

REACTIONS (3)
  - Renal failure acute [None]
  - Anaemia [None]
  - Renal tubular necrosis [None]
